FAERS Safety Report 13422988 (Version 1)
Quarter: 2017Q2

REPORT INFORMATION
  Report Type: Spontaneous
  Country: US (occurrence: US)
  Receive Date: 20170410
  Receipt Date: 20170410
  Transmission Date: 20170830
  Serious: No
  Sender: FDA-Public Use
  Company Number: US-BAYER-2017-067141

PATIENT
  Age: 5 Year

DRUGS (2)
  1. CLARITIN [Suspect]
     Active Substance: LORATADINE
     Indication: SINUS DISORDER
  2. CLARITIN [Suspect]
     Active Substance: LORATADINE
     Indication: SINUS DISORDER
     Dosage: UNK

REACTIONS (5)
  - Product use in unapproved indication [None]
  - Hypermetabolism [None]
  - Product use issue [Unknown]
  - Somnolence [Unknown]
  - Drug effect incomplete [Unknown]
